FAERS Safety Report 14224870 (Version 2)
Quarter: 2017Q4

REPORT INFORMATION
  Report Type: Report from Study
  Country: None (occurrence: DE)
  Receive Date: 20171127
  Receipt Date: 20171219
  Transmission Date: 20180321
  Serious: Yes (Hospitalization, Other)
  Sender: FDA-Public Use
  Company Number: DE-ABBVIE-17K-062-2174817-00

PATIENT
  Age: 56 Year
  Sex: Male
  Weight: 69 kg

DRUGS (2)
  1. HUMIRA [Suspect]
     Active Substance: ADALIMUMAB
     Indication: CROHN^S DISEASE
  2. HUMIRA [Suspect]
     Active Substance: ADALIMUMAB
     Indication: PSORIASIS
     Route: 058
     Dates: start: 20170719

REACTIONS (11)
  - Haemorrhoids [Unknown]
  - Faeces soft [Recovered/Resolved]
  - Dizziness [Unknown]
  - Asthenia [Unknown]
  - Haematochezia [Unknown]
  - Hospitalisation [Unknown]
  - Faeces hard [Unknown]
  - Gastric ulcer [Recovered/Resolved]
  - Decreased appetite [Unknown]
  - Duodenal ulcer [Unknown]
  - Dyspnoea exertional [Unknown]

NARRATIVE: CASE EVENT DATE: 2017
